FAERS Safety Report 14137952 (Version 2)
Quarter: 2018Q1

REPORT INFORMATION
  Report Type: Spontaneous
  Country: US (occurrence: US)
  Receive Date: 20171027
  Receipt Date: 20180328
  Transmission Date: 20180508
  Serious: Yes (Other)
  Sender: FDA-Public Use
  Company Number: PHEH2017US033928

PATIENT
  Sex: Female
  Weight: 94 kg

DRUGS (2)
  1. ADDERALL [Concomitant]
     Active Substance: AMPHETAMINE ASPARTATE\AMPHETAMINE SULFATE\DEXTROAMPHETAMINE SACCHARATE\DEXTROAMPHETAMINE SULFATE
     Indication: PRODUCT USED FOR UNKNOWN INDICATION
     Dosage: UNK
     Route: 065
  2. COSENTYX [Suspect]
     Active Substance: SECUKINUMAB
     Indication: PSORIASIS
     Dosage: 150 MG, QW (ONCE PER WEEK FOR 5 WEEKS)
     Route: 058

REACTIONS (5)
  - Dermatitis exfoliative generalised [Unknown]
  - Device failure [Unknown]
  - Device leakage [Unknown]
  - Accidental exposure to product [Unknown]
  - Drug ineffective [Unknown]
